FAERS Safety Report 8342995-X (Version None)
Quarter: 2012Q2

REPORT INFORMATION
  Report Type: 
  Country: None (occurrence: None)
  Receive Date: 20120508
  Receipt Date: 20120502
  Transmission Date: 20120825
  Serious: Yes (Other)
  Sender: FDA-Public Use
  Company Number: PHHY2012BR038100

PATIENT
  Sex: Female
  Weight: 58 kg

DRUGS (5)
  1. BENERVA [Concomitant]
     Dosage: UNK UKN, UNK
  2. TYLENOL (CAPLET) [Concomitant]
     Dosage: UNK UKN, UNK
  3. FORMOTEROL FUMARATE [Suspect]
     Indication: BRONCHIECTASIS
     Dosage: 1 DF, BID (1 INHALATION OF EACH ACTIVE IN THE MORNING AND 1 INHALATION OF EACH ACTIVE AT NIGHT)
  4. MECLIZINE HYDROCHLORIDE [Concomitant]
     Dosage: UNK UKN, UNK
  5. RANITIDINE [Concomitant]
     Dosage: UNK UKN, UNK

REACTIONS (1)
  - BREAST CANCER [None]
